FAERS Safety Report 23524792 (Version 1)
Quarter: 2024Q1

REPORT INFORMATION
  Report Type: Spontaneous
  Country: FR (occurrence: FR)
  Receive Date: 20240215
  Receipt Date: 20240215
  Transmission Date: 20240410
  Serious: Yes (Hospitalization)
  Sender: FDA-Public Use
  Company Number: None

PATIENT
  Age: 68 Year
  Sex: Male
  Weight: 62 kg

DRUGS (4)
  1. CLARITHROMYCIN [Suspect]
     Active Substance: CLARITHROMYCIN
     Indication: Atypical mycobacterial infection
     Dosage: CLARITHROMYCINE
     Route: 048
     Dates: start: 20231117, end: 20231201
  2. ETHAMBUTOL [Concomitant]
     Active Substance: ETHAMBUTOL HYDROCHLORIDE
     Indication: Atypical mycobacterial infection
     Dosage: ETHAMBUTOL (CHLORHYDRATE D^)
     Route: 048
     Dates: start: 20231117, end: 20231201
  3. RIFABUTIN [Concomitant]
     Active Substance: RIFABUTIN
     Indication: Atypical mycobacterial infection
     Dosage: RIFABUTINE
     Route: 048
     Dates: start: 20231117, end: 20231201
  4. SERTRALINE [Suspect]
     Active Substance: SERTRALINE HYDROCHLORIDE
     Indication: Product used for unknown indication
     Dosage: BASE
     Route: 048
     Dates: start: 20231114, end: 20231203

REACTIONS (1)
  - Pancreatitis [Recovering/Resolving]

NARRATIVE: CASE EVENT DATE: 20231201
